FAERS Safety Report 9819955 (Version 1)
Quarter: 2014Q1

REPORT INFORMATION
  Report Type: Spontaneous
  Country: US (occurrence: None)
  Receive Date: 20140113
  Receipt Date: 20140113
  Transmission Date: 20141002
  Serious: Yes (Life-Threatening, Hospitalization)
  Sender: FDA-Public Use
  Company Number: None

PATIENT
  Age: 52 Year
  Sex: Male
  Weight: 90.27 kg

DRUGS (1)
  1. Z PACK [Suspect]
     Indication: SINUSITIS
     Dates: start: 20131226, end: 20131230

REACTIONS (2)
  - Extrasystoles [None]
  - Atrial fibrillation [None]
